FAERS Safety Report 9922449 (Version 2)
Quarter: 2014Q1

REPORT INFORMATION
  Report Type: Spontaneous
  Country: CN (occurrence: CN)
  Receive Date: 20140225
  Receipt Date: 20140307
  Transmission Date: 20141002
  Serious: Yes (Other)
  Sender: FDA-Public Use
  Company Number: CN-BAYER-2014-028745

PATIENT
  Age: 60 Year
  Sex: Male
  Weight: 58 kg

DRUGS (13)
  1. NEXAVAR [Suspect]
     Indication: HEPATOCELLULAR CARCINOMA
     Dosage: 400 MG, BID (800MG DAILY)
     Dates: start: 20140218, end: 20140220
  2. PANTOPRAZOLE [Concomitant]
     Dosage: 60 MG, UNK
     Route: 042
     Dates: start: 20140212, end: 20140214
  3. ORNITHINE ASPARTATE [Concomitant]
     Dosage: 2.5 G, UNK
     Route: 042
     Dates: start: 20140212, end: 20140224
  4. ADEMETIONINE [Concomitant]
     Dosage: 1000 MG, UNK
     Route: 042
     Dates: start: 20140212, end: 20140223
  5. ULINASTATIN [Concomitant]
     Dosage: 200000 U, UNK
     Dates: start: 20140212, end: 20140216
  6. ONDANSETRON HYDROCHLORIDE [Concomitant]
     Dosage: 8 MG, UNK
     Route: 042
     Dates: start: 20140212, end: 20140214
  7. POTASSIUM CHLORIDE [Concomitant]
     Dosage: UNK
     Route: 042
     Dates: start: 20140221, end: 20140224
  8. INSULIN [Concomitant]
     Dosage: UNK
     Route: 042
     Dates: start: 20140221, end: 20140224
  9. VITAMIN C [Concomitant]
     Dosage: UNK
     Route: 042
     Dates: start: 20140221, end: 20140224
  10. MEPERIDINE [Concomitant]
     Dosage: UNK
     Route: 030
     Dates: start: 20140213
  11. DIAZEPAM [Concomitant]
     Dosage: UNK
     Dates: start: 20140202
  12. DIAZEPAM [Concomitant]
     Dosage: 400 MG, BID
     Dates: start: 20140219, end: 20140221
  13. FLURBIPROFEN AXETIL [Concomitant]
     Dosage: UNK
     Dates: start: 20140213

REACTIONS (2)
  - Delirium [Recovered/Resolved]
  - Depressed level of consciousness [Recovered/Resolved]
